FAERS Safety Report 5788865-2 (Version None)
Quarter: 2008Q2

REPORT INFORMATION
  Report Type: 
  Country: None (occurrence: None)
  Receive Date: 20080626
  Receipt Date: 20071205
  Transmission Date: 20081010
  Serious: No
  Sender: FDA-Public Use
  Company Number: US-ASTRAZENECA-2007UW27781

PATIENT
  Sex: Male

DRUGS (1)
  1. PULMICORT-100 [Suspect]
     Indication: EMPHYSEMA
     Route: 055

REACTIONS (4)
  - COUGH [None]
  - DYSPHONIA [None]
  - INCREASED BRONCHIAL SECRETION [None]
  - LARYNGITIS [None]
